FAERS Safety Report 23609063 (Version 1)
Quarter: 2024Q1

REPORT INFORMATION
  Report Type: Spontaneous
  Country: ES (occurrence: None)
  Receive Date: 20240308
  Receipt Date: 20240308
  Transmission Date: 20240410
  Serious: Yes (Other)
  Sender: FDA-Public Use
  Company Number: ES-ROCHE-3488400

PATIENT
  Age: 8 Decade
  Sex: Male

DRUGS (6)
  1. METHOTREXATE [Suspect]
     Active Substance: METHOTREXATE
     Indication: Still^s disease
  2. RITUXIMAB [Suspect]
     Active Substance: RITUXIMAB
     Indication: Immunosuppressant drug therapy
  3. ADALIMUMAB [Suspect]
     Active Substance: ADALIMUMAB\ISOPROPYL ALCOHOL
     Indication: Immunosuppressant drug therapy
  4. TOCILIZUMAB [Suspect]
     Active Substance: TOCILIZUMAB
     Indication: Immunosuppressant drug therapy
  5. PREDNISONE [Suspect]
     Active Substance: PREDNISONE
     Indication: Still^s disease
  6. PREDNISONE [Suspect]
     Active Substance: PREDNISONE
     Dosage: DECREASE OF STEROIDS BELOW 20 MG/DAY

REACTIONS (5)
  - Diabetes mellitus [Unknown]
  - Confusional state [Unknown]
  - Urinary tract infection [Unknown]
  - Pneumocystis jirovecii pneumonia [Unknown]
  - Product use in unapproved indication [Unknown]
